FAERS Safety Report 4945485-7 (Version None)
Quarter: 2006Q1

REPORT INFORMATION
  Report Type: 
  Country: None (occurrence: None)
  Receive Date: 20060206
  Receipt Date: 20060206
  Transmission Date: 20060701
  Serious: Yes (Disabling)
  Sender: FDA-Public Use
  Company Number: None

PATIENT
  Age: 47 Year
  Sex: Female
  Weight: 63.5036 kg

DRUGS (1)
  1. SARGENTI RC -2B [Suspect]
     Indication: ENDODONTIC PROCEDURE
     Dosage: ONCE DENTAL
     Route: 004
     Dates: start: 20051007, end: 20051214

REACTIONS (7)
  - CAUSTIC INJURY [None]
  - HYPOAESTHESIA [None]
  - HYPOAESTHESIA ORAL [None]
  - INCORRECT DOSE ADMINISTERED [None]
  - LIP PAIN [None]
  - OFF LABEL USE [None]
  - PAIN [None]
